FAERS Safety Report 24435222 (Version 2)
Quarter: 2024Q4

REPORT INFORMATION
  Report Type: Report from Study
  Country: US (occurrence: US)
  Receive Date: 20241015
  Receipt Date: 20241017
  Transmission Date: 20250115
  Serious: Yes (Other)
  Sender: ABBVIE
  Company Number: US-ABBVIE-5955998

PATIENT
  Age: 71 Year
  Sex: Male
  Weight: 104 kg

DRUGS (1)
  1. QULIPTA [Suspect]
     Active Substance: ATOGEPANT
     Indication: Migraine
     Dosage: FORM STRENGTH: 60 MILLIGRAM
     Route: 048
     Dates: start: 20240301

REACTIONS (2)
  - Venous operation [Recovering/Resolving]
  - Venous operation [Recovering/Resolving]

NARRATIVE: CASE EVENT DATE: 20240828
